FAERS Safety Report 8430194-2 (Version None)
Quarter: 2012Q2

REPORT INFORMATION
  Report Type: 
  Country: None (occurrence: None)
  Receive Date: 20120612
  Receipt Date: 20120528
  Transmission Date: 20120825
  Serious: Yes (Other)
  Sender: FDA-Public Use
  Company Number: JP-VERTEX PHARMACEUTICALS INC.-AE-2012-003668

PATIENT
  Age: 56 Year
  Sex: Male

DRUGS (11)
  1. TELAVIC (TELAPREVIR) [Suspect]
     Indication: HEPATITIS C
     Route: 048
     Dates: start: 20120206
  2. NEXIUM [Concomitant]
     Route: 048
     Dates: start: 20120305
  3. PANTOSIN [Concomitant]
     Route: 048
     Dates: start: 20120206, end: 20120220
  4. MAGNESIUM OXIDE [Concomitant]
     Route: 048
     Dates: start: 20120206, end: 20120220
  5. RIBAVIRIN [Concomitant]
     Route: 048
     Dates: start: 20120220, end: 20120311
  6. PEGINTERFERON ALFA-2A [Concomitant]
     Indication: HEPATITIS C
     Route: 058
     Dates: start: 20120206
  7. RIBAVIRIN [Concomitant]
     Route: 048
     Dates: start: 20120312
  8. DIOVAN [Concomitant]
     Route: 048
     Dates: start: 20120213
  9. PURSENNID [Concomitant]
     Route: 048
     Dates: start: 20120312
  10. RIBAVIRIN [Concomitant]
     Indication: HEPATITIS C
     Route: 048
     Dates: start: 20120206, end: 20120219
  11. MOTILIUM [Concomitant]
     Route: 048
     Dates: start: 20120215, end: 20120401

REACTIONS (1)
  - DEPRESSION [None]
